FAERS Safety Report 9125149 (Version 1)
Quarter: 2013Q1

REPORT INFORMATION
  Report Type: Spontaneous
  Country: US (occurrence: US)
  Receive Date: 20130227
  Receipt Date: 20130227
  Transmission Date: 20140127
  Serious: Yes (Death, Hospitalization)
  Sender: FDA-Public Use
  Company Number: US-JNJFOC-20130210045

PATIENT
  Age: 11 Year
  Sex: Male

DRUGS (1)
  1. RISPERDAL [Suspect]
     Indication: TOURETTE^S DISORDER
     Route: 048
     Dates: start: 2011

REACTIONS (4)
  - Diabetic hyperosmolar coma [Fatal]
  - Cerebrovascular accident [Fatal]
  - Type 2 diabetes mellitus [Unknown]
  - Protein C deficiency [Unknown]
